FAERS Safety Report 9963723 (Version 1)
Quarter: 2014Q1

REPORT INFORMATION
  Report Type: Report from Study
  Country: US (occurrence: US)
  Receive Date: 20140305
  Receipt Date: 20140305
  Transmission Date: 20141002
  Serious: No
  Sender: FDA-Public Use
  Company Number: US-ABBVIE-13P-163-1119003-00

PATIENT
  Age: 60 Year
  Sex: Male
  Weight: 115.77 kg

DRUGS (5)
  1. HUMIRA [Suspect]
     Indication: ARTHROPATHY
     Dates: start: 2010
  2. HUMIRA [Suspect]
     Indication: ARTHRITIS
  3. ISONIAZID [Suspect]
     Indication: ANTIBIOTIC PROPHYLAXIS
     Dates: start: 201306
  4. LISINOPRIL [Concomitant]
     Indication: PRODUCT USED FOR UNKNOWN INDICATION
  5. ASACOL [Concomitant]
     Indication: PRODUCT USED FOR UNKNOWN INDICATION

REACTIONS (2)
  - Palpitations [Unknown]
  - Mycobacterium tuberculosis complex test positive [Unknown]
